FAERS Safety Report 9869902 (Version 4)
Quarter: 2014Q1

REPORT INFORMATION
  Report Type: Report from Study
  Country: AU (occurrence: AU)
  Receive Date: 20140205
  Receipt Date: 20140224
  Transmission Date: 20141002
  Serious: Yes (Hospitalization, Other)
  Sender: FDA-Public Use
  Company Number: AU-VERTEX PHARMACEUTICALS INC-2014-000352

PATIENT
  Age: 39 Year
  Sex: Male
  Weight: 69 kg

DRUGS (23)
  1. VX-809 FDC [Suspect]
     Indication: CYSTIC FIBROSIS
     Dosage: 400 MG, Q12H
     Route: 048
     Dates: start: 20140115, end: 20140128
  2. VX-809 FDC [Suspect]
     Dosage: 400 MG, Q12H
     Route: 048
     Dates: start: 20140203, end: 20140203
  3. VX-770 FDC [Suspect]
     Indication: CYSTIC FIBROSIS
     Dosage: 250 MG, Q12H
     Route: 048
     Dates: start: 20140115, end: 20140128
  4. VX-770 FDC [Suspect]
     Dosage: 250 MG, Q12H
     Route: 048
     Dates: start: 20140203, end: 20140203
  5. VX-809 FDC [Suspect]
     Indication: CYSTIC FIBROSIS
     Dosage: 400 MG, Q12H
     Route: 048
     Dates: start: 20131119
  6. VX-770 FDC [Suspect]
     Indication: CYSTIC FIBROSIS
     Dosage: 250 MG, Q12H
     Route: 048
     Dates: start: 20131119
  7. AZITHROMYCIN [Concomitant]
     Indication: CYSTIC FIBROSIS LUNG
     Dosage: 250 MG, QD
     Route: 048
     Dates: start: 201302
  8. CREON FORTE [Concomitant]
     Indication: PANCREATIC INSUFFICIENCY
     Dosage: 6-10 CAPS, W/ MEALS, SNACKS
     Route: 048
     Dates: start: 2000
  9. ATROVENT [Concomitant]
     Indication: CYSTIC FIBROSIS LUNG
     Dosage: 500 ?G, BID
     Route: 055
     Dates: start: 1987
  10. SALBUTAMOL [Concomitant]
     Indication: CYSTIC FIBROSIS LUNG
     Dosage: 5 MG, BID
     Route: 055
     Dates: start: 1987
  11. SALBUTAMOL [Concomitant]
     Dosage: 200 ?G, PRN
     Route: 058
     Dates: start: 1987
  12. NUTRITION [Concomitant]
     Indication: MALNUTRITION
     Dosage: 1000 ML, QW X4
     Route: 006
     Dates: start: 2000
  13. RESOURCE PLUS [Concomitant]
     Indication: MALNUTRITION
     Dosage: 1 DF, QD
     Route: 048
     Dates: start: 2001
  14. GLUCOLYTE [Concomitant]
     Indication: PROPHYLAXIS AGAINST DEHYDRATION
     Dosage: 1 SACHET, QID
     Route: 048
     Dates: start: 1991
  15. PANTOPRAZOLE [Concomitant]
     Indication: GASTROOESOPHAGEAL REFLUX DISEASE
     Dosage: 40 MG, QD
     Route: 048
     Dates: start: 1991
  16. URSODEOXYCHOLIC ACID [Concomitant]
     Indication: LIVER DISORDER
     Dosage: 250 MG, BID
     Route: 048
     Dates: start: 2006
  17. PULMOZYME [Concomitant]
     Indication: CYSTIC FIBROSIS LUNG
     Dosage: 2.5 MG, QD
     Route: 055
     Dates: start: 1999
  18. SERETIDE [Concomitant]
     Indication: CYSTIC FIBROSIS LUNG
     Dosage: 2 PUFFS, BID
     Route: 058
     Dates: start: 2001
  19. HYPERTONIC SALINE SOLUTION [Concomitant]
     Indication: CYSTIC FIBROSIS LUNG
     Dosage: 4.5 %, BID
     Route: 055
     Dates: start: 2005
  20. SALT [Concomitant]
     Indication: PROPHYLAXIS AGAINST DEHYDRATION
     Dosage: 2-4 TABLETS, QD
     Route: 048
     Dates: start: 1987
  21. MULTIVITAMIN 6 [Concomitant]
     Indication: VITAMIN SUPPLEMENTATION
     Dosage: 2 DF, QD
     Route: 048
     Dates: start: 2009
  22. HUMALOG [Concomitant]
     Indication: CYSTIC FIBROSIS RELATED DIABETES
     Dosage: 8-10 IU, TID
     Route: 058
     Dates: start: 2003
  23. ACTRAPID [Concomitant]
     Indication: CYSTIC FIBROSIS RELATED DIABETES
     Dosage: 32 IU, QD
     Route: 058
     Dates: start: 2003

REACTIONS (2)
  - Forced expiratory volume decreased [Recovered/Resolved]
  - Infective pulmonary exacerbation of cystic fibrosis [Recovered/Resolved]
